FAERS Safety Report 18654633 (Version 8)
Quarter: 2021Q2

REPORT INFORMATION
  Report Type: Spontaneous
  Country: US (occurrence: US)
  Receive Date: 20201223
  Receipt Date: 20210616
  Transmission Date: 20210717
  Serious: Yes (Other)
  Sender: FDA-Public Use
  Company Number: US-GLAXOSMITHKLINE-US2020AMR248363

PATIENT
  Sex: Female

DRUGS (5)
  1. ZEJULA [Suspect]
     Active Substance: NIRAPARIB
     Dosage: 200 MG, QD
     Dates: start: 20210204
  2. ZEJULA [Suspect]
     Active Substance: NIRAPARIB
     Dosage: 300 MG, QD
     Route: 048
     Dates: start: 20201220
  3. ZEJULA [Suspect]
     Active Substance: NIRAPARIB
     Dosage: 200 MG, QD
  4. ZEJULA [Suspect]
     Active Substance: NIRAPARIB
     Dosage: 100 MG, QD (1 A DAY)
  5. ZEJULA [Suspect]
     Active Substance: NIRAPARIB
     Indication: OVARIAN CANCER
     Dosage: 300 MG, QD
     Route: 048
     Dates: start: 20201208, end: 20201209

REACTIONS (20)
  - Glomerular filtration rate decreased [Unknown]
  - Asthenia [Unknown]
  - Feeding disorder [Recovered/Resolved]
  - Nausea [Recovered/Resolved]
  - Inappropriate schedule of product administration [Recovered/Resolved]
  - Renal impairment [Not Recovered/Not Resolved]
  - Syncope [Unknown]
  - Hypertension [Not Recovered/Not Resolved]
  - Blood magnesium decreased [Unknown]
  - Abdominal pain upper [Recovered/Resolved]
  - Nephropathy [Unknown]
  - Intentional underdose [Recovered/Resolved]
  - Dizziness [Not Recovered/Not Resolved]
  - Arthralgia [Unknown]
  - Feeling abnormal [Recovered/Resolved]
  - Blood count abnormal [Unknown]
  - Fatigue [Unknown]
  - Blood pressure abnormal [Not Recovered/Not Resolved]
  - Fear [Unknown]
  - Blood pressure decreased [Recovered/Resolved]
